FAERS Safety Report 9913775 (Version 1)
Quarter: 2014Q1

REPORT INFORMATION
  Report Type: Spontaneous
  Country: US (occurrence: US)
  Receive Date: 20140220
  Receipt Date: 20140220
  Transmission Date: 20141002
  Serious: No
  Sender: FDA-Public Use
  Company Number: US-009507513-1402USA007992

PATIENT
  Sex: Female

DRUGS (10)
  1. DULERA [Suspect]
     Indication: BRONCHITIS CHRONIC
     Dosage: 2 PUFFS TWICE DAILY
     Route: 055
     Dates: start: 20110214
  2. ALBUTEROL [Concomitant]
  3. SPIRIVA [Concomitant]
  4. MUCINEX [Concomitant]
  5. SINGULAIR [Concomitant]
     Route: 048
  6. SYNTHROID [Concomitant]
  7. LISINOPRIL [Concomitant]
     Route: 048
  8. AMLODIPINE [Concomitant]
  9. AZELASTINE HYDROCHLORIDE [Concomitant]
  10. FLUTICASONE [Concomitant]

REACTIONS (2)
  - Dyspnoea [Recovered/Resolved]
  - Product quality issue [Unknown]
